FAERS Safety Report 16146408 (Version 3)
Quarter: 2019Q3

REPORT INFORMATION
  Report Type: Spontaneous
  Country: RU (occurrence: RU)
  Receive Date: 20190402
  Receipt Date: 20190815
  Transmission Date: 20191004
  Serious: Yes (Life-Threatening, Hospitalization, Other)
  Sender: FDA-Public Use
  Company Number: RU-ABBVIE-19S-251-2728415-00

PATIENT
  Age: 56 Year
  Sex: Male
  Weight: 74 kg

DRUGS (1)
  1. VIEKIRA PAK [Suspect]
     Active Substance: DASABUVIR\OMBITASVIR\PARITAPREVIR\RITONAVIR
     Indication: HEPATITIS C
     Dosage: 2 TABLETS (OMBITASVIR / PARITAPREVIR/ RITONAVIR) 1X DAY; 1 TABLET DASABUVIR 250 MG 2XDAY
     Route: 048
     Dates: start: 20190219, end: 20190327

REACTIONS (5)
  - Body temperature increased [Unknown]
  - Alanine aminotransferase increased [Recovering/Resolving]
  - Alanine aminotransferase increased [Unknown]
  - Nausea [Unknown]
  - Aspartate aminotransferase increased [Recovered/Resolved]

NARRATIVE: CASE EVENT DATE: 20190219
